FAERS Safety Report 13339268 (Version 2)
Quarter: 2017Q1

REPORT INFORMATION
  Report Type: Spontaneous
  Country: AU (occurrence: AU)
  Receive Date: 20170315
  Receipt Date: 20170322
  Transmission Date: 20170428
  Serious: Yes (Other)
  Sender: FDA-Public Use
  Company Number: AU-UCBSA-2017009188

PATIENT
  Age: 70 Year
  Sex: Male

DRUGS (8)
  1. OLANZAPINE. [Suspect]
     Active Substance: OLANZAPINE
     Indication: PRODUCT USED FOR UNKNOWN INDICATION
     Dosage: 15 MG (IN 2 DIVIDED DOSE)
  2. COMTAN [Suspect]
     Active Substance: ENTACAPONE
     Indication: PRODUCT USED FOR UNKNOWN INDICATION
     Dosage: 200 MG, 2X/DAY (BID)
  3. METOPROLOL. [Suspect]
     Active Substance: METOPROLOL
     Indication: PRODUCT USED FOR UNKNOWN INDICATION
     Dosage: 12.5 MG, 2X/DAY (BID)
  4. LEVODOPA-CARBIDOPA [Suspect]
     Active Substance: CARBIDOPA\LEVODOPA
     Indication: PRODUCT USED FOR UNKNOWN INDICATION
     Dosage: STRENGTH: 150/37.5 MG, DOSE UNKNOWN AND FREQUENCY 4X/DAY (QID)
  5. NEUPRO [Suspect]
     Active Substance: ROTIGOTINE
     Indication: PRODUCT USED FOR UNKNOWN INDICATION
     Dosage: 2 MG, ONCE DAILY (QD)
  6. MIRTAZAPINE. [Suspect]
     Active Substance: MIRTAZAPINE
     Indication: PRODUCT USED FOR UNKNOWN INDICATION
     Dosage: 15 MG, ONCE DAILY (QD) (QHS NOCTE)
  7. VENLAFAXINE HYDROCHLORIDE. [Suspect]
     Active Substance: VENLAFAXINE HYDROCHLORIDE
     Indication: PRODUCT USED FOR UNKNOWN INDICATION
     Dosage: 300 MG, ONCE DAILY (QD)
  8. DIGOXIN. [Suspect]
     Active Substance: DIGOXIN
     Indication: PRODUCT USED FOR UNKNOWN INDICATION
     Dosage: 125 ?G, ONCE DAILY (QD)

REACTIONS (14)
  - Hallucination, visual [Unknown]
  - Lymphocyte count decreased [Unknown]
  - Protein total decreased [Unknown]
  - Ventricular hypokinesia [Unknown]
  - Ejection fraction decreased [Unknown]
  - Blood chloride increased [Unknown]
  - Dilatation atrial [Unknown]
  - Neutrophil count increased [Recovered/Resolved]
  - Tricuspid valve sclerosis [Unknown]
  - Blood lactate dehydrogenase increased [Unknown]
  - Drug effect incomplete [Unknown]
  - Mitral valve sclerosis [Unknown]
  - Blood pressure systolic [Unknown]
  - Delusion [Unknown]

NARRATIVE: CASE EVENT DATE: 20160908
